APPROVED DRUG PRODUCT: PERCORTEN
Active Ingredient: DESOXYCORTICOSTERONE PIVALATE
Strength: 25MG/ML
Dosage Form/Route: INJECTABLE;INJECTION
Application: N008822 | Product #001
Applicant: NOVARTIS PHARMACEUTICALS CORP
Approved: Approved Prior to Jan 1, 1982 | RLD: No | RS: No | Type: DISCN